FAERS Safety Report 9133414 (Version 2)
Quarter: 2013Q1

REPORT INFORMATION
  Report Type: Spontaneous
  Country: US (occurrence: US)
  Receive Date: 20130301
  Receipt Date: 20130320
  Transmission Date: 20140127
  Serious: No
  Sender: FDA-Public Use
  Company Number: US-PFIZER INC-2013071957

PATIENT
  Age: 78 Year
  Sex: Female
  Weight: 64.85 kg

DRUGS (8)
  1. LIPITOR [Suspect]
     Indication: BLOOD CHOLESTEROL INCREASED
     Dosage: 80 MG, DAILY AT NIGHT
     Dates: start: 2004
  2. LIPITOR [Suspect]
     Indication: CARDIAC DISORDER
     Dosage: 40 MG, DAILY
  3. LIPITOR [Suspect]
     Indication: CORONARY ARTERIAL STENT INSERTION
  4. RAMIPRIL [Suspect]
     Indication: HYPERTENSION
     Dosage: 5 MG, DAILY
  5. NIFEDIPINE [Suspect]
     Indication: HYPERTENSION
     Dosage: 90 MG, DAILY
  6. CELLCEPT [Suspect]
     Indication: MYASTHENIA GRAVIS
     Dosage: 250 MG, 2X/DAY
  7. PYRIDOSTIGMINE [Concomitant]
     Indication: MYASTHENIA GRAVIS
     Dosage: 60 MG, 5X/DAY
  8. PREDNISONE [Concomitant]
     Indication: MYASTHENIA GRAVIS
     Dosage: 10 MG ON ONE DAY AND 5 MG ON THE OTHER DAY

REACTIONS (3)
  - Blood pressure fluctuation [Unknown]
  - Oropharyngeal pain [Unknown]
  - Fatigue [Unknown]
